FAERS Safety Report 5410116-9 (Version None)
Quarter: 2007Q3

REPORT INFORMATION
  Report Type: 
  Country: None (occurrence: None)
  Receive Date: 20070809
  Receipt Date: 20070731
  Transmission Date: 20080115
  Serious: Yes (Congenital Anomaly)
  Sender: FDA-Public Use
  Company Number: US-SHR-US-2007-004605

PATIENT
  Age: 6 Month
  Sex: Female
  Weight: 3.487 kg

DRUGS (3)
  1. PRENATAL VITAMINS [Concomitant]
     Dates: start: 20061031
  2. FOLIC ACID [Concomitant]
  3. BETAFERON (SH Y 579E) [Suspect]
     Dosage: .3 MG, UNK
     Dates: end: 20061005

REACTIONS (3)
  - DRUG EXPOSURE DURING PREGNANCY [None]
  - POLYDACTYLY [None]
  - PREGNANCY [None]
